FAERS Safety Report 9327552 (Version 7)
Quarter: 2014Q2

REPORT INFORMATION
  Report Type: Spontaneous
  Country: US (occurrence: US)
  Receive Date: 20130604
  Receipt Date: 20140515
  Transmission Date: 20141212
  Serious: Yes (Hospitalization)
  Sender: FDA-Public Use
  Company Number: US-AMGEN-USASP2013039154

PATIENT
  Age: 90 Year
  Sex: Female
  Weight: 64.49 kg

DRUGS (16)
  1. PROLIA [Suspect]
     Indication: OSTEOPOROSIS POSTMENOPAUSAL
     Dosage: 60 MG/ML, UNK
     Route: 030
     Dates: start: 20130408
  2. ALENDRONATE [Concomitant]
  3. ASPIRIN [Concomitant]
     Dosage: 81 MG, UNK
  4. CENTRUM SILVER                     /02363801/ [Concomitant]
  5. FISH OIL [Concomitant]
  6. CALCIUM [Concomitant]
  7. LEVOTHYROXINE [Concomitant]
  8. ATORVASTATIN [Concomitant]
  9. METOPROLOL [Concomitant]
  10. MINITRAN                           /00003201/ [Concomitant]
  11. NITROGLYCERIN [Concomitant]
  12. SYNTHROID [Concomitant]
  13. TYLENOL                            /00020001/ [Concomitant]
  14. VITAMIN D                          /00107901/ [Concomitant]
  15. CRESTOR [Concomitant]
  16. NEXIUM                             /01479302/ [Concomitant]

REACTIONS (13)
  - Dyspnoea [Recovered/Resolved]
  - Palpitations [Recovered/Resolved]
  - Pruritus generalised [Not Recovered/Not Resolved]
  - Blister [Unknown]
  - Purpura [Not Recovered/Not Resolved]
  - Incorrect route of drug administration [Unknown]
  - Eosinophilic cellulitis [Not Recovered/Not Resolved]
  - Rash erythematous [Not Recovered/Not Resolved]
  - Rash pruritic [Not Recovered/Not Resolved]
  - Skin disorder [Unknown]
  - Asthenia [Unknown]
  - Pruritus [Not Recovered/Not Resolved]
  - Rash [Not Recovered/Not Resolved]
